FAERS Safety Report 18712702 (Version 1)
Quarter: 2021Q1

REPORT INFORMATION
  Report Type: Spontaneous
  Country: CN (occurrence: CN)
  Receive Date: 20210107
  Receipt Date: 20210107
  Transmission Date: 20210419
  Serious: Yes (Hospitalization, Other)
  Sender: FDA-Public Use
  Company Number: CN-SLATE RUN PHARMACEUTICALS-20CN000370

PATIENT

DRUGS (6)
  1. MEROPENEM. [Concomitant]
     Active Substance: MEROPENEM
     Indication: PNEUMONIA
     Dosage: 100 MILLIGRAM, Q 8 HR
     Route: 065
  2. VANCOMYCIN HYDROCHLORIDE USP [Suspect]
     Active Substance: VANCOMYCIN HYDROCHLORIDE
     Indication: STAPHYLOCOCCAL INFECTION
  3. VANCOMYCIN HYDROCHLORIDE USP [Suspect]
     Active Substance: VANCOMYCIN HYDROCHLORIDE
     Indication: OSTEOMYELITIS BACTERIAL
     Dosage: 166 MILLIGRAM, Q 12 HR
     Route: 042
  4. CEFTIZOXIME [Concomitant]
     Active Substance: CEFTIZOXIME
     Indication: ANTIBIOTIC THERAPY
     Dosage: 450 MILLIGRAM, BID
     Route: 065
  5. AZITHROMYCIN USP [Suspect]
     Active Substance: AZITHROMYCIN
     Indication: PNEUMONIA
     Dosage: 100 MILLIGRAM, QD
     Route: 065
  6. FLUCLOXACILLIN [Concomitant]
     Active Substance: FLUCLOXACILLIN
     Indication: ANTIBIOTIC THERAPY
     Dosage: 450 MILLIGRAM, BID
     Route: 042

REACTIONS (5)
  - Rash [Recovered/Resolved]
  - Pancytopenia [Recovered/Resolved]
  - Off label use [Recovered/Resolved]
  - Drug hypersensitivity [Recovered/Resolved]
  - Pneumonia [Recovered/Resolved]
